FAERS Safety Report 19035795 (Version 1)
Quarter: 2021Q1

REPORT INFORMATION
  Report Type: Spontaneous
  Country: NO (occurrence: NO)
  Receive Date: 20210321
  Receipt Date: 20210321
  Transmission Date: 20210420
  Serious: Yes (Other)
  Sender: FDA-Public Use
  Company Number: NO-TEVA-2021-NO-1891543

PATIENT
  Age: 29 Year
  Sex: Male

DRUGS (1)
  1. RAMIPRIL ACTAVIS [Suspect]
     Active Substance: RAMIPRIL
     Indication: PROTEINURIA
     Dosage: 5MILLIGRAM
     Route: 048
     Dates: start: 20201024, end: 20201202

REACTIONS (3)
  - Abdominal pain upper [Recovered/Resolved]
  - Hypoaesthesia oral [Recovered/Resolved]
  - Intestinal angioedema [Recovered/Resolved]

NARRATIVE: CASE EVENT DATE: 20201031
